FAERS Safety Report 12117434 (Version 1)
Quarter: 2016Q1

REPORT INFORMATION
  Report Type: Spontaneous
  Country: FR (occurrence: FR)
  Receive Date: 20160225
  Receipt Date: 20160225
  Transmission Date: 20160526
  Serious: Yes (Hospitalization)
  Sender: FDA-Public Use
  Company Number: FR-HOSPIRA-3176040

PATIENT
  Age: 34 Year
  Sex: Female

DRUGS (4)
  1. GEMCITABINE [Suspect]
     Active Substance: GEMCITABINE\GEMCITABINE HYDROCHLORIDE
     Indication: ENDOMETRIAL SARCOMA
     Route: 042
     Dates: start: 20160120
  2. GEMCITABINE [Suspect]
     Active Substance: GEMCITABINE\GEMCITABINE HYDROCHLORIDE
     Indication: ENDOMETRIAL SARCOMA
     Route: 042
     Dates: start: 20151229
  3. DOCETAXEL HOSPIRA [Suspect]
     Active Substance: DOCETAXEL
     Indication: ENDOMETRIAL SARCOMA
     Route: 042
     Dates: start: 20151229, end: 20151229
  4. GEMCITABINE [Suspect]
     Active Substance: GEMCITABINE\GEMCITABINE HYDROCHLORIDE
     Indication: ENDOMETRIAL SARCOMA
     Route: 042
     Dates: start: 20160120

REACTIONS (6)
  - Pyrexia [Not Recovered/Not Resolved]
  - Pleural effusion [Unknown]
  - N-terminal prohormone brain natriuretic peptide increased [Unknown]
  - Sepsis [Unknown]
  - Troponin increased [Unknown]
  - Erysipelas [Unknown]

NARRATIVE: CASE EVENT DATE: 20160124
